FAERS Safety Report 6888859-X (Version None)
Quarter: 2010Q3

REPORT INFORMATION
  Report Type: 
  Country: None (occurrence: None)
  Receive Date: 20100730
  Receipt Date: 20071126
  Transmission Date: 20110219
  Serious: No
  Sender: FDA-Public Use
  Company Number: US-PFIZER INC-2005048484

PATIENT
  Sex: Female
  Weight: 81.65 kg

DRUGS (2)
  1. LIPITOR [Suspect]
     Indication: BLOOD CHOLESTEROL
     Route: 048
     Dates: start: 20040101
  2. BENICAR HCT [Suspect]
     Indication: HYPERTENSION
     Dosage: 40/12.5MG
     Route: 048

REACTIONS (6)
  - BACK PAIN [None]
  - CONSTIPATION [None]
  - FIBROMYALGIA [None]
  - INSOMNIA [None]
  - NECK PAIN [None]
  - POLLAKIURIA [None]
